FAERS Safety Report 9631842 (Version 1)
Quarter: 2013Q4

REPORT INFORMATION
  Report Type: Spontaneous
  Country: US (occurrence: US)
  Receive Date: 20131018
  Receipt Date: 20131018
  Transmission Date: 20140711
  Serious: Yes (Hospitalization)
  Sender: FDA-Public Use
  Company Number: US-SA-2013SA102418

PATIENT
  Age: 66 Year
  Sex: Male

DRUGS (19)
  1. PLAVIX [Suspect]
     Route: 065
  2. ORLISTAT [Suspect]
     Indication: WEIGHT LOSS DIET
     Route: 048
  3. ORLISTAT [Suspect]
     Indication: WEIGHT LOSS DIET
     Route: 048
  4. FUROSEMIDE [Suspect]
     Indication: CARDIAC FAILURE CONGESTIVE
     Route: 048
  5. FUROSEMIDE [Suspect]
     Indication: CARDIAC FAILURE CONGESTIVE
     Route: 048
  6. NICOTINIC ACID [Suspect]
     Route: 065
  7. METFORMIN HYDROCHLORIDE [Suspect]
     Route: 065
  8. GLIPIZIDE [Suspect]
     Route: 065
  9. NEXIUM [Suspect]
     Route: 065
  10. DILTIAZEM HYDROCHLORIDE [Suspect]
     Route: 065
  11. ENALAPRIL [Suspect]
     Route: 065
  12. COUMADIN [Suspect]
     Route: 065
  13. DIGOXIN [Suspect]
     Route: 065
  14. CRESTOR [Suspect]
     Route: 065
  15. POTASSIUM [Suspect]
     Route: 065
  16. ACTOS [Suspect]
     Route: 065
  17. VICTOZA [Suspect]
     Route: 065
  18. ALL OTHER THERAPEUTIC PRODUCTS [Suspect]
     Indication: MULTIPLE ALLERGIES
     Route: 065
  19. ALL OTHER THERAPEUTIC PRODUCTS [Suspect]
     Route: 065

REACTIONS (5)
  - Cardiac failure congestive [Not Recovered/Not Resolved]
  - Fluid retention [Not Recovered/Not Resolved]
  - Weight increased [Not Recovered/Not Resolved]
  - Urine output decreased [Not Recovered/Not Resolved]
  - Pulmonary oedema [Unknown]
